FAERS Safety Report 7685386 (Version 4)
Quarter: 2013Q2

REPORT INFORMATION
  Report Type: Report from Study
  Country: US (occurrence: US)
  Receive Date: 20101013
  Receipt Date: 20130425
  Transmission Date: 20140414
  Serious: Yes (Hospitalization)
  Sender: FDA-Public Use
  Company Number: US-BAXTER-2010BH024940

PATIENT
  Age: 72 Year
  Sex: Female
  Weight: 48 kg

DRUGS (10)
  1. LEXAPRO [Suspect]
     Indication: DEPRESSION
     Route: 048
     Dates: start: 200410
  2. NAMENDA [Concomitant]
     Indication: DEMENTIA ALZHEIMER^S TYPE
     Route: 048
     Dates: start: 200402
  3. ALENDRONATE SODIUM [Concomitant]
     Indication: OSTEOPOROSIS
     Route: 048
     Dates: start: 2006
  4. ASPIRINE [Concomitant]
     Indication: CARDIOVASCULAR EVENT PROPHYLAXIS
     Route: 048
     Dates: start: 2006
  5. FOLIC ACID W/VITAMIN B12 [Concomitant]
     Indication: SUPPLEMENTATION THERAPY
     Route: 048
     Dates: start: 2007
  6. LOPERAMIDE HYDROCHLORIDE [Concomitant]
     Indication: DIARRHOEA
     Route: 048
     Dates: start: 200908
  7. CALCIUM W/VITAMIN D NOS [Concomitant]
     Indication: SUPPLEMENTATION THERAPY
     Route: 048
     Dates: start: 2006
  8. EXELON [Concomitant]
     Indication: DEMENTIA ALZHEIMER^S TYPE
     Route: 062
     Dates: start: 20100516
  9. GAMMAGARD LIQUID [Suspect]
     Indication: DEMENTIA ALZHEIMER^S TYPE
     Dosage: 200 MG/ML BODY WEIGHT
     Route: 042
     Dates: start: 20100921, end: 20100921
  10. GAMMAGARD LIQUID [Suspect]
     Dosage: 200 MG/ML BODY WEIGHT
     Route: 042
     Dates: start: 20091104, end: 20100921

REACTIONS (1)
  - Haemoglobin decreased [Recovered/Resolved]
